FAERS Safety Report 9652094 (Version 1)
Quarter: 2013Q4

REPORT INFORMATION
  Report Type: Spontaneous
  Country: LV (occurrence: None)
  Receive Date: 20131025
  Receipt Date: 20131025
  Transmission Date: 20140711
  Serious: Yes (Other)
  Sender: FDA-Public Use
  Company Number: DSM-2013-00973

PATIENT
  Age: 57 Year
  Sex: Female
  Weight: 87 kg

DRUGS (3)
  1. OLMESARTAN MEDOXOMI [Suspect]
     Indication: HYPERTENSION
     Dosage: 208 MG,(1 IN 1 D), ORAL
     Route: 048
     Dates: start: 20131003, end: 20131008
  2. INDAPAMIDE [Concomitant]
  3. LUSOPRESS [Concomitant]

REACTIONS (4)
  - Headache [None]
  - Face oedema [None]
  - Paraesthesia [None]
  - Dry mouth [None]
